FAERS Safety Report 9515230 (Version 1)
Quarter: 2013Q1

REPORT INFORMATION
  Report Type: Spontaneous
  Country: US (occurrence: None)
  Receive Date: 20130305
  Receipt Date: 20130305
  Transmission Date: 20140127
  Serious: Yes (Other)
  Sender: FDA-Public Use
  Company Number: 163-21880-12121724

PATIENT
  Age: 72 Year
  Sex: Male

DRUGS (21)
  1. REVLIMID [Suspect]
     Indication: PLASMA CELL MYELOMA
     Route: 048
     Dates: start: 201006, end: 201102
  2. DEXAMETHASONE (DEXAMETHASONE) [Concomitant]
  3. ASA (ACETYLSALICYLIC ACID) [Concomitant]
  4. ACYCLOVIR (ACICLOVIR) (ACICLOVIR) [Concomitant]
  5. LISINOPRIL (LISINOPRIL) [Concomitant]
  6. METOPROLOL (METOPROLOL) [Concomitant]
  7. METFORMIN (METFORMIN) [Concomitant]
  8. GLIPIZIDE (GLIPIZIDE) [Concomitant]
  9. SIMVASTATIN (SIMVASTATIN) [Concomitant]
  10. FAMOTIDINE (FAMOTIDINE) [Concomitant]
  11. CITALOPRAM (CITALOPRAM) [Concomitant]
  12. TESTOSTERONE (TESTOSTERONE) [Concomitant]
  13. VARDENAFIL (VARDENAFIL) [Concomitant]
  14. FERROUS SULFATE (FERROUS SULFATE) [Concomitant]
  15. CALCIUM (CALCIUM) [Concomitant]
  16. VITAMIN B COMPLEX (B-KOMPLEX ^LECIVA^) [Concomitant]
  17. VITAMIN C [Concomitant]
  18. MVI (MVI) [Concomitant]
  19. GLUCOSAMIN + CHONDROITIN (CHONDROITIN SODIUM SULFATE W/ GLUCOSAMINE HCL) [Concomitant]
  20. FLAXSEED OIL (LINSEED OIL) [Concomitant]
  21. FISH OIL (FISH OIL) [Concomitant]

REACTIONS (1)
  - Pancytopenia [None]
